FAERS Safety Report 13291895 (Version 2)
Quarter: 2017Q1

REPORT INFORMATION
  Report Type: Spontaneous
  Country: JP (occurrence: JP)
  Receive Date: 20170303
  Receipt Date: 20170331
  Transmission Date: 20170428
  Serious: Yes (Other)
  Sender: FDA-Public Use
  Company Number: JP-GLAXOSMITHKLINE-JP2017JPN027894

PATIENT
  Age: 44 Year
  Sex: Male

DRUGS (1)
  1. ZAGALLO [Suspect]
     Active Substance: DUTASTERIDE
     Indication: ANDROGENETIC ALOPECIA
     Dosage: 0.5 MG, QD
     Route: 048
     Dates: start: 201610, end: 201701

REACTIONS (1)
  - Alopecia [Recovering/Resolving]

NARRATIVE: CASE EVENT DATE: 201612
